FAERS Safety Report 17373251 (Version 1)
Quarter: 2020Q1

REPORT INFORMATION
  Report Type: Spontaneous
  Country: US (occurrence: US)
  Receive Date: 20200205
  Receipt Date: 20200205
  Transmission Date: 20200409
  Serious: No
  Sender: FDA-Public Use
  Company Number: US-ENDO PHARMACEUTICALS INC-2019-109525

PATIENT
  Age: 61 Year
  Sex: Female

DRUGS (5)
  1. BUPROPION HYDROCHLORIDE. [Suspect]
     Active Substance: BUPROPION HYDROCHLORIDE
     Indication: FIBROMYALGIA
     Dosage: 150 MG, DAILY
     Route: 065
     Dates: start: 20191005, end: 20191103
  2. METOPROLOL SUCCINATE ER [Concomitant]
     Active Substance: METOPROLOL SUCCINATE
     Indication: PRODUCT USED FOR UNKNOWN INDICATION
  3. BUPROPION HYDROCHLORIDE. [Suspect]
     Active Substance: BUPROPION HYDROCHLORIDE
     Indication: INSOMNIA
  4. SERTRALINE [Concomitant]
     Active Substance: SERTRALINE HYDROCHLORIDE
     Indication: PRODUCT USED FOR UNKNOWN INDICATION
  5. BUPROPION HYDROCHLORIDE. [Suspect]
     Active Substance: BUPROPION HYDROCHLORIDE
     Indication: ARTHRALGIA
     Dosage: UNK

REACTIONS (11)
  - Balance disorder [Not Recovered/Not Resolved]
  - Irritability [Unknown]
  - Drug interaction [Unknown]
  - Dizziness [Not Recovered/Not Resolved]
  - Fall [Unknown]
  - Syncope [Unknown]
  - Visual impairment [Unknown]
  - Malaise [Unknown]
  - Off label use [Recovered/Resolved]
  - Hypertension [Not Recovered/Not Resolved]
  - Headache [Not Recovered/Not Resolved]

NARRATIVE: CASE EVENT DATE: 201910
